FAERS Safety Report 18261089 (Version 1)
Quarter: 2020Q3

REPORT INFORMATION
  Report Type: Spontaneous
  Country: US (occurrence: US)
  Receive Date: 20200914
  Receipt Date: 20200914
  Transmission Date: 20201103
  Serious: No
  Sender: FDA-Public Use
  Company Number: US-JNJFOC-20200908713

PATIENT
  Age: 7 Decade
  Sex: Female
  Weight: 74.91 kg

DRUGS (1)
  1. MENS ROGAINE EXTRA STRENGTH [Suspect]
     Active Substance: MINOXIDIL
     Indication: ALOPECIA
     Dosage: HALF A CAPFUL?PRODUCT WAS LAST USED ON 01/SEP/2020
     Route: 061
     Dates: start: 20200721

REACTIONS (4)
  - Alopecia [Unknown]
  - Off label use [Unknown]
  - Product use issue [Unknown]
  - Incorrect product administration duration [Unknown]

NARRATIVE: CASE EVENT DATE: 2020
